FAERS Safety Report 5662085-4 (Version None)
Quarter: 2008Q1

REPORT INFORMATION
  Report Type: 
  Country: None (occurrence: None)
  Receive Date: 20080312
  Receipt Date: 20080229
  Transmission Date: 20080703
  Serious: Yes (Hospitalization)
  Sender: FDA-Public Use
  Company Number: US-WYE-H02874308

PATIENT
  Sex: Male

DRUGS (9)
  1. EFFEXOR XR [Suspect]
     Dosage: OVERDOSE AMOUNT UNSPECIFIED
     Dates: start: 20080212, end: 20080212
  2. FLEXERIL [Suspect]
     Dosage: OVERDOSE AMOUNT UNSPECIFIED
     Dates: start: 20080212, end: 20080212
  3. PERCOCET [Concomitant]
     Dosage: 7.5/325 MG EVERY 6 HOURS
  4. ADDERALL 10 [Concomitant]
  5. HYCOMINE [Suspect]
     Dosage: OVERDOSE AMOUNT UNSPECIFIED
     Dates: start: 20080212, end: 20080212
  6. PAXIL [Suspect]
     Dosage: OVERDOSE AMOUNT UNSPECIFIED
     Dates: start: 20080212, end: 20080212
  7. ETHANOL [Suspect]
     Dosage: AMOUNT UNKNOWN
  8. LORAZEPAM [Suspect]
     Dosage: OVERDOSE AMOUNT UNSPECIFIED
     Dates: start: 20080212, end: 20080212
  9. XANAX [Concomitant]
     Dosage: 0.25 MG EVERY 8 HOURS PRN

REACTIONS (7)
  - ABNORMAL BEHAVIOUR [None]
  - CONFUSIONAL STATE [None]
  - DELIRIUM [None]
  - INTENTIONAL OVERDOSE [None]
  - RESPIRATORY FAILURE [None]
  - SUICIDE ATTEMPT [None]
  - UNRESPONSIVE TO STIMULI [None]
